FAERS Safety Report 8780264 (Version 1)
Quarter: 2012Q4

REPORT INFORMATION
  Report Type: Spontaneous
  Country: US (occurrence: None)
  Receive Date: 20120829
  Receipt Date: 20120829
  Transmission Date: 20130627
  Serious: Yes (Other)
  Sender: FDA-Public Use
  Company Number: US-DEXPHARM-20121068

PATIENT
  Age: 68 Year
  Sex: Female
  Weight: 65.76 kg

DRUGS (3)
  1. OMEPRAZOLE [Suspect]
     Route: 048
     Dates: start: 20120721
  2. OMEPRAZOLE [Suspect]
     Route: 048
     Dates: start: 20120721
  3. FUROSEMIDE [Concomitant]

REACTIONS (1)
  - Fracture [None]
